FAERS Safety Report 6035434-5 (Version None)
Quarter: 2009Q1

REPORT INFORMATION
  Report Type: 
  Country: None (occurrence: None)
  Receive Date: 20090108
  Receipt Date: 20081230
  Transmission Date: 20090719
  Serious: Yes (Other)
  Sender: FDA-Public Use
  Company Number: 1000003396

PATIENT
  Age: 28 Year
  Sex: Male

DRUGS (5)
  1. CITALOPRAM HYDROBROMIDE [Suspect]
     Indication: DEPRESSION
     Dosage: 20 MG (20 MG, 1 IN 1 D), ORAL
     Route: 048
     Dates: start: 20081103, end: 20081119
  2. HALDOL [Suspect]
     Indication: PSYCHOTIC DISORDER
     Dosage: 15 MG (5 MG, 3 IN 1 D), INTRAMUSCULAR
     Route: 030
     Dates: start: 20081114, end: 20081119
  3. TERCIAN (SOLUTION) [Suspect]
     Indication: ANXIETY
     Dosage: 150 MG (50 MG, 3 IN 1 D), INTRAMUSCULAR
     Route: 030
     Dates: start: 20081114, end: 20081119
  4. LEPTICUR (TABLETS) [Suspect]
     Indication: ANXIETY
     Dosage: 20 MG (10 MG, 2 IN 1 D), ORAL
     Route: 048
     Dates: start: 20081015, end: 20081119
  5. TRANXENE [Concomitant]

REACTIONS (5)
  - BLOOD CREATINE PHOSPHOKINASE INCREASED [None]
  - CYTOLYTIC HEPATITIS [None]
  - HYPERTHERMIA [None]
  - MUSCLE RIGIDITY [None]
  - TREMOR [None]
